FAERS Safety Report 17995633 (Version 2)
Quarter: 2020Q3

REPORT INFORMATION
  Report Type: Spontaneous
  Country: US (occurrence: US)
  Receive Date: 20200708
  Receipt Date: 20200910
  Transmission Date: 20201103
  Serious: No
  Sender: FDA-Public Use
  Company Number: US-GLENMARK PHARMACEUTICALS-2020GMK047239

PATIENT
  Age: 19 Year
  Sex: Female

DRUGS (2)
  1. CLINDAMYCIN AND BENZOYL PEROXIDE GEL, 1%/5% [Suspect]
     Active Substance: BENZOYL PEROXIDE\CLINDAMYCIN PHOSPHATE
     Dosage: UNK
     Route: 061
     Dates: start: 20200328, end: 20200329
  2. CLINDAMYCIN AND BENZOYL PEROXIDE GEL, 1%/5% [Suspect]
     Active Substance: BENZOYL PEROXIDE\CLINDAMYCIN PHOSPHATE
     Indication: ACNE
     Dosage: UNK UNK, SINGLE (AS DIRECTED (NOT SPECIFIED)
     Route: 061
     Dates: start: 20200325, end: 20200325

REACTIONS (5)
  - Swelling face [Recovered/Resolved]
  - Swelling of eyelid [Recovered/Resolved]
  - Erythema of eyelid [Recovered/Resolved]
  - Erythema [Recovered/Resolved]
  - Product substitution issue [Unknown]

NARRATIVE: CASE EVENT DATE: 20200326
